FAERS Safety Report 5586518-7 (Version None)
Quarter: 2007Q4

REPORT INFORMATION
  Report Type: 
  Country: None (occurrence: None)
  Receive Date: 20071205
  Receipt Date: 20061109
  Transmission Date: 20080405
  Serious: Yes (Other)
  Sender: FDA-Public Use
  Company Number: HQWYE218210NOV06

PATIENT
  Age: 55 Year
  Sex: Female

DRUGS (6)
  1. EFFEXOR XR [Suspect]
     Indication: PANIC REACTION
     Dosage: 150 MG 1X PER 1 DAY, ORAL
     Route: 048
     Dates: start: 20061107
  2. AMBIEN [Suspect]
  3. FIORINAL [Suspect]
  4. HYDROCODONE BITARTRATE [Concomitant]
  5. XANAX [Suspect]
  6. EXCEDRIN (ACETYLSALICYLIC ACID/CAFFEINE/PARACETAMOL/SALICYLAMIDE) [Concomitant]

REACTIONS (3)
  - BONE PAIN [None]
  - DRUG INTERACTION [None]
  - MALAISE [None]
